FAERS Safety Report 14066806 (Version 1)
Quarter: 2017Q4

REPORT INFORMATION
  Report Type: Spontaneous
  Country: US (occurrence: None)
  Receive Date: 20171006
  Receipt Date: 20171006
  Transmission Date: 20180321
  Serious: No
  Sender: FDA-Public Use
  Company Number: None

PATIENT
  Sex: Male

DRUGS (1)
  1. NOVOPEN ECHO [Suspect]
     Active Substance: DEVICE

REACTIONS (6)
  - Vomiting [None]
  - Confusional state [None]
  - Blood glucose increased [None]
  - Fear of death [None]
  - Somnolence [None]
  - Malaise [None]

NARRATIVE: CASE EVENT DATE: 20171002
